FAERS Safety Report 22939461 (Version 3)
Quarter: 2023Q4

REPORT INFORMATION
  Report Type: Report from Study
  Country: CN (occurrence: CN)
  Receive Date: 20230913
  Receipt Date: 20231019
  Transmission Date: 20240109
  Serious: Yes (Hospitalization)
  Sender: FDA-Public Use
  Company Number: CN-ASTELLAS-2023US027208

PATIENT
  Age: 11 Year
  Sex: Male
  Weight: 31 kg

DRUGS (21)
  1. TACROLIMUS [Suspect]
     Active Substance: TACROLIMUS
     Indication: Renal transplant
     Dosage: 2.8MG QD, 2.6MG QN, TWICE DAILY
     Route: 048
     Dates: start: 20221108, end: 20221108
  2. TACROLIMUS [Suspect]
     Active Substance: TACROLIMUS
     Route: 048
     Dates: start: 20221109, end: 20221115
  3. TACROLIMUS [Suspect]
     Active Substance: TACROLIMUS
     Dosage: 2.8 MG QD, 3.6MG  QN, TWICE DAILY
     Route: 048
     Dates: start: 20221116, end: 20221116
  4. TACROLIMUS [Suspect]
     Active Substance: TACROLIMUS
     Route: 048
     Dates: start: 20221117, end: 20221128
  5. TACROLIMUS [Suspect]
     Active Substance: TACROLIMUS
     Dosage: 3.6MG  QD, 2.6 MG QN, TWICE DAILY
     Route: 048
     Dates: start: 20221129, end: 20221129
  6. TACROLIMUS [Suspect]
     Active Substance: TACROLIMUS
     Route: 048
     Dates: start: 20221130, end: 20221213
  7. TACROLIMUS [Suspect]
     Active Substance: TACROLIMUS
     Dosage: 2.6MG QD, 2.2MG  QN, TWICE DAILY
     Route: 048
     Dates: start: 20221214, end: 20221214
  8. TACROLIMUS [Suspect]
     Active Substance: TACROLIMUS
     Route: 048
     Dates: start: 20221215, end: 20230110
  9. TACROLIMUS [Suspect]
     Active Substance: TACROLIMUS
     Dosage: 2.2MG  QD, 2MG  QN, TWICE DAILY
     Route: 048
     Dates: start: 20230111, end: 20230111
  10. TACROLIMUS [Suspect]
     Active Substance: TACROLIMUS
     Route: 048
     Dates: start: 20230112, end: 20230201
  11. TACROLIMUS [Suspect]
     Active Substance: TACROLIMUS
     Dosage: 2.2MG  QD, 2MG  QN, TWICE DAILY
     Route: 048
     Dates: start: 20230202, end: 20230315
  12. TACROLIMUS [Suspect]
     Active Substance: TACROLIMUS
     Route: 048
     Dates: start: 20230316, end: 20230510
  13. TACROLIMUS [Suspect]
     Active Substance: TACROLIMUS
     Dosage: 2.2MG QD, 2MG QN, TWICE DAILY
     Route: 048
     Dates: start: 20230511, end: 20230531
  14. TACROLIMUS [Suspect]
     Active Substance: TACROLIMUS
     Route: 048
     Dates: start: 20230601, end: 20230628
  15. TACROLIMUS [Suspect]
     Active Substance: TACROLIMUS
     Dosage: 2.2 MG, ONCE DAILY (AT NIGHT)
     Route: 048
     Dates: start: 20230629, end: 20230629
  16. TACROLIMUS [Suspect]
     Active Substance: TACROLIMUS
     Route: 048
     Dates: start: 20230630, end: 20231010
  17. TACROLIMUS [Suspect]
     Active Substance: TACROLIMUS
     Dosage: 2.2MG (QD)/2.4MG (QN), TWICE DAILY
     Route: 048
     Dates: start: 20231011, end: 20231011
  18. TACROLIMUS [Suspect]
     Active Substance: TACROLIMUS
     Route: 048
     Dates: start: 20231012
  19. MYCOPHENOLATE SODIUM [Concomitant]
     Active Substance: MYCOPHENOLATE SODIUM
     Indication: Product used for unknown indication
     Dosage: 0.18 G QD, 0.36 G QN, TWICE DAILY (ENTERIC-COATED TABLETS)
     Route: 048
     Dates: start: 20221221
  20. FERROUS SUCCINATE [Concomitant]
     Active Substance: FERROUS SUCCINATE
     Indication: Product used for unknown indication
     Dosage: 0.1 G, ONCE DAILY
     Route: 048
     Dates: start: 20221115
  21. FEBUXOSTAT [Concomitant]
     Active Substance: FEBUXOSTAT
     Indication: Product used for unknown indication
     Route: 048
     Dates: start: 20230412

REACTIONS (1)
  - Lymphadenopathy [Not Recovered/Not Resolved]

NARRATIVE: CASE EVENT DATE: 20230907
